FAERS Safety Report 11242387 (Version 1)
Quarter: 2015Q3

REPORT INFORMATION
  Report Type: Spontaneous
  Country: FR (occurrence: FR)
  Receive Date: 20150707
  Receipt Date: 20150707
  Transmission Date: 20151125
  Serious: Yes (Life-Threatening, Hospitalization, Disabling)
  Sender: FDA-Public Use
  Company Number: FR-ROCHE-1603775

PATIENT
  Age: 2 Year
  Sex: Female

DRUGS (1)
  1. ACTILYSE [Suspect]
     Active Substance: ALTEPLASE
     Indication: THROMBOLYSIS
     Route: 042
     Dates: start: 20150121, end: 20150121

REACTIONS (1)
  - Arterial thrombosis [Recovered/Resolved with Sequelae]

NARRATIVE: CASE EVENT DATE: 20150125
